FAERS Safety Report 9221544 (Version 1)
Quarter: 2013Q1

REPORT INFORMATION
  Report Type: Spontaneous
  Country: US (occurrence: None)
  Receive Date: 20120831
  Receipt Date: 20120831
  Transmission Date: 20140127
  Serious: Yes (Other)
  Sender: FDA-Public Use
  Company Number: 330907USA

PATIENT
  Age: 59 Year
  Sex: Female
  Weight: 98.43 kg

DRUGS (3)
  1. ORAP [Suspect]
     Indication: TOURETTE^S DISORDER
     Dosage: 4 MG (2 MG, 2 IN 1 D),ORAL
     Route: 048
     Dates: start: 1995, end: 201203
  2. HALOPERIDOL [Suspect]
     Route: 048
     Dates: start: 20120328
  3. BENZTROPINE MESYLATE [Suspect]
     Indication: ADVERSE DRUG REACTION
     Dates: start: 2012, end: 2012

REACTIONS (8)
  - Tourette^s disorder [None]
  - Neurological symptom [None]
  - Bruxism [None]
  - Dyskinesia [None]
  - Gastrointestinal disorder [None]
  - Anxiety [None]
  - Fear [None]
  - Weight decreased [None]
